FAERS Safety Report 12618131 (Version 1)
Quarter: 2016Q3

REPORT INFORMATION
  Report Type: Report from Study
  Country: US (occurrence: US)
  Receive Date: 20160803
  Receipt Date: 20160803
  Transmission Date: 20161109
  Serious: Yes (Death, Hospitalization, Other)
  Sender: FDA-Public Use
  Company Number: US-GILEAD-2016-0226170

PATIENT
  Age: 70 Year
  Sex: Female

DRUGS (14)
  1. AMBRISENTAN [Suspect]
     Active Substance: AMBRISENTAN
     Indication: HEART DISEASE CONGENITAL
  2. WARFARIN [Concomitant]
     Active Substance: WARFARIN
  3. K-TAB [Concomitant]
     Active Substance: POTASSIUM CHLORIDE
  4. VITAMIN D3 [Concomitant]
     Active Substance: CHOLECALCIFEROL
  5. METOPROLOL. [Concomitant]
     Active Substance: METOPROLOL
  6. OMEPRAZOLE. [Concomitant]
     Active Substance: OMEPRAZOLE
  7. TARTRATE DE PENTOLONIUM [Concomitant]
  8. ATORVASTATIN [Concomitant]
     Active Substance: ATORVASTATIN
  9. FOLIC ACID. [Concomitant]
     Active Substance: FOLIC ACID
  10. FUROSEMIDE. [Concomitant]
     Active Substance: FUROSEMIDE
  11. PREDNISONE. [Concomitant]
     Active Substance: PREDNISONE
  12. VITAMIN B12 [Concomitant]
     Active Substance: CYANOCOBALAMIN
  13. AMBRISENTAN [Suspect]
     Active Substance: AMBRISENTAN
     Indication: PULMONARY HYPERTENSION
     Dosage: 10 MG, QD
     Route: 048
     Dates: start: 20160412, end: 20160627
  14. NIFEDIPINE. [Concomitant]
     Active Substance: NIFEDIPINE

REACTIONS (6)
  - Pyrexia [Unknown]
  - Hypotension [Unknown]
  - Multiple organ dysfunction syndrome [Unknown]
  - Death [Fatal]
  - Lung infiltration [Unknown]
  - Shock [Unknown]

NARRATIVE: CASE EVENT DATE: 20160701
